FAERS Safety Report 5431662-8 (Version None)
Quarter: 2007Q3

REPORT INFORMATION
  Report Type: 
  Country: None (occurrence: None)
  Receive Date: 20070830
  Receipt Date: 20070827
  Transmission Date: 20080115
  Serious: Yes (Hospitalization)
  Sender: FDA-Public Use
  Company Number: US-ASTRAZENECA-2007UW20407

PATIENT

DRUGS (1)
  1. CRESTOR [Suspect]

REACTIONS (1)
  - HEPATIC STEATOSIS [None]
